FAERS Safety Report 10204610 (Version 3)
Quarter: 2014Q4

REPORT INFORMATION
  Report Type: Spontaneous
  Country: DK (occurrence: None)
  Receive Date: 20140527
  Receipt Date: 20141117
  Transmission Date: 20150528
  Serious: Yes (Hospitalization, Other)
  Sender: FDA-Public Use
  Company Number: ADR-2014-00875

PATIENT
  Age: 19 Year
  Sex: Male

DRUGS (1)
  1. LIORESAL [Suspect]
     Active Substance: BACLOFEN
     Dosage: DAY

REACTIONS (8)
  - Vomiting [None]
  - Appendicitis [None]
  - Device malfunction [None]
  - Hypotonia [None]
  - Loss of consciousness [None]
  - Incorrect route of drug administration [None]
  - Overdose [None]
  - Device physical property issue [None]
